FAERS Safety Report 6639683-4 (Version None)
Quarter: 2010Q1

REPORT INFORMATION
  Report Type: 
  Country: None (occurrence: None)
  Receive Date: 20100318
  Receipt Date: 20100310
  Transmission Date: 20100710
  Serious: Yes (Hospitalization)
  Sender: FDA-Public Use
  Company Number: US-ASTRAZENECA-2010SE10365

PATIENT
  Age: 56 Year
  Sex: Female

DRUGS (12)
  1. CRESTOR [Suspect]
     Route: 048
     Dates: start: 20100217
  2. GLUCOPHAGE [Concomitant]
  3. SYNTHROID [Concomitant]
  4. NEURONTIN [Concomitant]
  5. XANAX [Concomitant]
  6. SINGULAIR [Concomitant]
  7. CELEXA [Concomitant]
  8. CARDIZEM [Concomitant]
  9. COREG [Concomitant]
  10. MAGOX WITH VIT D [Concomitant]
  11. VITAMINS [Concomitant]
  12. FISH OIL [Concomitant]

REACTIONS (6)
  - ABASIA [None]
  - ASTHENIA [None]
  - BLOOD SODIUM DECREASED [None]
  - DYSPNOEA [None]
  - MIGRAINE [None]
  - PYREXIA [None]
